FAERS Safety Report 7831056-1 (Version None)
Quarter: 2011Q4

REPORT INFORMATION
  Report Type: 
  Country: None (occurrence: None)
  Receive Date: 20111021
  Receipt Date: 20111013
  Transmission Date: 20120403
  Serious: Yes (Other)
  Sender: FDA-Public Use
  Company Number: PHEH2011US06888

PATIENT
  Age: 65 Year
  Sex: Female
  Weight: 45 kg

DRUGS (4)
  1. STALEVO 100 [Suspect]
     Dosage: 150 MG, SEVEN TIME DAILY
  2. STALEVO 100 [Suspect]
     Indication: PARKINSON'S DISEASE
     Dosage: 150 MG, QID
  3. STALEVO 100 [Suspect]
     Dosage: 150 MG, FIVE TIME DAILY
  4. ANTIDEPRESSANTS [Concomitant]
     Dosage: UNK UKN, UNK

REACTIONS (7)
  - DISEASE PROGRESSION [None]
  - FREEZING PHENOMENON [None]
  - DRUG EFFECT DECREASED [None]
  - HIP FRACTURE [None]
  - TREMOR [None]
  - PARKINSON'S DISEASE [None]
  - DYSKINESIA [None]
